FAERS Safety Report 5304818-2 (Version None)
Quarter: 2007Q2

REPORT INFORMATION
  Report Type: 
  Country: None (occurrence: None)
  Receive Date: 20070423
  Receipt Date: 20070412
  Transmission Date: 20071010
  Serious: Yes (Other)
  Sender: FDA-Public Use
  Company Number: JP-SANOFI-SYNTHELABO-A01200703863

PATIENT
  Age: 89 Year
  Sex: Female

DRUGS (7)
  1. TICLOPIDINE HCL [Concomitant]
     Indication: DRUG USE FOR UNKNOWN INDICATION
     Dosage: UNK
     Route: 048
  2. CILOSMERCK [Concomitant]
     Indication: DRUG USE FOR UNKNOWN INDICATION
     Dosage: UNK
     Route: 048
  3. EVISTA [Concomitant]
     Indication: DRUG USE FOR UNKNOWN INDICATION
     Dosage: UNK
     Route: 048
  4. LANIRAPID [Concomitant]
     Indication: DRUG USE FOR UNKNOWN INDICATION
     Dosage: 0.5 MG
     Route: 048
  5. DICHLOTRIDE [Concomitant]
     Indication: DRUG USE FOR UNKNOWN INDICATION
     Dosage: 25 MG
     Route: 048
  6. TAKEPRON [Concomitant]
     Indication: DRUG USE FOR UNKNOWN INDICATION
     Dosage: 15 MG
     Route: 048
  7. MYSLEE [Suspect]
     Indication: INSOMNIA
     Dosage: 5 MG
     Route: 048
     Dates: start: 20050709

REACTIONS (1)
  - DELIRIUM [None]
